FAERS Safety Report 6200463-5 (Version None)
Quarter: 2009Q2

REPORT INFORMATION
  Report Type: 
  Country: None (occurrence: None)
  Receive Date: 20090522
  Receipt Date: 20080318
  Transmission Date: 20091009
  Serious: No
  Sender: FDA-Public Use
  Company Number: US-ALEXION-A200800059

PATIENT
  Sex: Male

DRUGS (7)
  1. SOLIRIS [Suspect]
     Indication: PAROXYSMAL NOCTURNAL HAEMOGLOBINURIA
     Dosage: 600 MG, SINGLE
     Route: 042
     Dates: start: 20080312, end: 20080312
  2. TYLENOL (CAPLET) [Concomitant]
     Dosage: UNK, QD
     Route: 048
  3. NEXIUM [Concomitant]
     Dosage: UNK, QD
     Route: 048
  4. PROTONIX                           /01263201/ [Concomitant]
     Dosage: UNK, QD
     Route: 048
  5. FOLIC ACID [Concomitant]
     Dosage: UNK, QD
     Route: 048
  6. NAPROSYN [Concomitant]
     Dosage: UNK, QD
     Route: 048
  7. PREDNISONE [Concomitant]
     Dosage: UNK, QD
     Route: 048
     Dates: end: 20080302

REACTIONS (1)
  - DIZZINESS [None]
